FAERS Safety Report 7785918-4 (Version None)
Quarter: 2011Q3

REPORT INFORMATION
  Report Type: 
  Country: None (occurrence: None)
  Receive Date: 20110929
  Receipt Date: 20110923
  Transmission Date: 20111222
  Serious: Yes (Hospitalization)
  Sender: FDA-Public Use
  Company Number: ES-ROCHE-802164

PATIENT
  Sex: Female

DRUGS (7)
  1. FLUOROURACIL [Suspect]
     Indication: COLORECTAL CANCER METASTATIC
     Dosage: LAST DOSE PRIOR TO SAE: 13 MAY 2011 FORM: INFUSION SOLUTION
     Route: 042
  2. ENOXAPARINA [Concomitant]
     Dates: start: 20110626, end: 20110629
  3. LEUCOVORIN CALCIUM [Suspect]
     Indication: COLORECTAL CANCER METASTATIC
     Dosage: INFUSION, LAST DOSE PRIOR TO SAE : 13 MAY 2011
     Route: 042
  4. AVASTIN [Suspect]
     Indication: COLORECTAL CANCER METASTATIC
     Dosage: INFUSION, LAST DOSE PRIOR TO SAE: 13 MAY 2011
     Route: 042
  5. PANTOPRAZOLE [Concomitant]
  6. FUROSEMIDE [Concomitant]
     Dates: start: 20110626, end: 20110805
  7. OXALIPLATIN [Suspect]
     Indication: COLORECTAL CANCER METASTATIC
     Dosage: INFUSION, LAST DOSE PRIOR TO SAE: 13 MAY 2011
     Route: 042

REACTIONS (2)
  - HAEMATOMA [None]
  - PLEURAL EFFUSION [None]
